FAERS Safety Report 23417331 (Version 1)
Quarter: 2024Q1

REPORT INFORMATION
  Report Type: Spontaneous
  Country: US (occurrence: US)
  Receive Date: 20240118
  Receipt Date: 20240118
  Transmission Date: 20240410
  Serious: No
  Sender: FDA-Public Use
  Company Number: US-SK LIFE SCIENCE, INC-SKPVG-2023-000939

PATIENT

DRUGS (5)
  1. XCOPRI [Suspect]
     Active Substance: CENOBAMATE
     Indication: Epilepsy
     Dosage: UNK
     Route: 048
  2. XCOPRI [Suspect]
     Active Substance: CENOBAMATE
     Dosage: 150 MILLIGRAM
     Route: 048
  3. XCOPRI [Suspect]
     Active Substance: CENOBAMATE
     Dosage: 50MG AND 200MG
     Route: 048
  4. VIMPAT [Concomitant]
     Active Substance: LACOSAMIDE
     Indication: Product used for unknown indication
     Dosage: 100MG AND 50 MG
     Route: 065
  5. ZONISAMIDE [Concomitant]
     Active Substance: ZONISAMIDE
     Indication: Product used for unknown indication
     Dosage: 100 MILLIGRAM,3 TABLETS TWICE DAILY
     Route: 065

REACTIONS (5)
  - Product dose omission issue [Recovered/Resolved]
  - Seizure [Not Recovered/Not Resolved]
  - Muscle spasms [Not Recovered/Not Resolved]
  - Muscle twitching [Not Recovered/Not Resolved]
  - Drug titration error [Not Recovered/Not Resolved]
